FAERS Safety Report 23161405 (Version 1)
Quarter: 2023Q4

REPORT INFORMATION
  Report Type: Spontaneous
  Country: DE (occurrence: DE)
  Receive Date: 20231108
  Receipt Date: 20231108
  Transmission Date: 20240110
  Serious: Yes (Hospitalization)
  Sender: FDA-Public Use
  Company Number: DE-BoehringerIngelheim-2023-BI-261644

PATIENT
  Age: 83 Year
  Sex: Male

DRUGS (1)
  1. PRADAXA [Suspect]
     Active Substance: DABIGATRAN ETEXILATE MESYLATE
     Indication: Cerebrovascular accident
     Route: 048
     Dates: start: 2013

REACTIONS (11)
  - Wound [Unknown]
  - Haemorrhagic diathesis [Not Recovered/Not Resolved]
  - Haemorrhoids [Not Recovered/Not Resolved]
  - Haematoma [Not Recovered/Not Resolved]
  - Off label use [Unknown]
  - Haemorrhoidal haemorrhage [Unknown]
  - Gastrointestinal disorder [Unknown]
  - Haemorrhage [Unknown]
  - Dizziness [Unknown]
  - Stomatitis [Unknown]
  - Product administration error [Unknown]

NARRATIVE: CASE EVENT DATE: 20130101
